FAERS Safety Report 6670669-X (Version None)
Quarter: 2010Q2

REPORT INFORMATION
  Report Type: 
  Country: None (occurrence: None)
  Receive Date: 20100407
  Receipt Date: 20100326
  Transmission Date: 20101027
  Serious: Yes (Other)
  Sender: FDA-Public Use
  Company Number: CZ-JNJFOC-20100301136

PATIENT
  Age: 60 Year
  Sex: Male

DRUGS (9)
  1. REMICADE [Suspect]
     Indication: RHEUMATOID ARTHRITIS
     Route: 042
  2. REMICADE [Suspect]
     Route: 042
  3. REMICADE [Suspect]
     Route: 042
  4. REMICADE [Suspect]
     Route: 042
  5. METHOTREXATE [Concomitant]
     Indication: RHEUMATOID ARTHRITIS
  6. ARAVA [Concomitant]
     Indication: RHEUMATOID ARTHRITIS
  7. MEDROL [Concomitant]
     Indication: RHEUMATOID ARTHRITIS
  8. DOLGIC [Concomitant]
     Indication: RHEUMATOID ARTHRITIS
  9. ACIDUM FOLICUM [Concomitant]
     Indication: RHEUMATOID ARTHRITIS

REACTIONS (5)
  - CONTUSION [None]
  - FUNGAL SKIN INFECTION [None]
  - ONYCHOMYCOSIS [None]
  - STRIDOR [None]
  - TREMOR [None]
